FAERS Safety Report 5314163-7 (Version None)
Quarter: 2007Q2

REPORT INFORMATION
  Report Type: 
  Country: None (occurrence: None)
  Receive Date: 20070426
  Receipt Date: 20070417
  Transmission Date: 20071010
  Serious: Yes (Other)
  Sender: FDA-Public Use
  Company Number: 16319

PATIENT
  Age: 53 Year
  Sex: Female

DRUGS (8)
  1. METHOTREXATE [Suspect]
     Indication: DERMATOMYOSITIS
     Dosage: 7.5 MG WEEKLY
     Dates: start: 20030401
  2. METHYLPREDNISOLONE 16MG TAB [Suspect]
     Indication: DERMATOMYOSITIS
     Dosage: 1000 MG OTH IV
     Route: 042
     Dates: start: 20030401
  3. METHYLPREDNISOLONE 16MG TAB [Suspect]
     Indication: DERMATOMYOSITIS
     Route: 042
     Dates: start: 20030501
  4. PREDNISOLONE [Suspect]
     Indication: DERMATOMYOSITIS
     Dosage: 60 MG DAILY
     Dates: start: 19990101
  5. PREDNISOLONE [Suspect]
     Indication: DERMATOMYOSITIS
     Dosage: 30 MG DAILY
     Dates: start: 20030301
  6. PREDNISOLONE [Suspect]
     Indication: DERMATOMYOSITIS
     Dosage: 60 MG DAILY
     Dates: start: 20030501
  7. VOGLIBOSE [Suspect]
     Indication: DIABETES MELLITUS
     Dosage: 0.6 MG DAILY PO
     Route: 048
     Dates: start: 20030401
  8. INSULIN [Concomitant]

REACTIONS (15)
  - ABDOMINAL DISTENSION [None]
  - ABDOMINAL TENDERNESS [None]
  - ALDOLASE INCREASED [None]
  - BLOOD CREATINE PHOSPHOKINASE INCREASED [None]
  - BOWEL SOUNDS ABNORMAL [None]
  - DIABETES MELLITUS [None]
  - DYSPHAGIA [None]
  - FLATULENCE [None]
  - MUSCULAR WEAKNESS [None]
  - NAUSEA [None]
  - PNEUMATOSIS INTESTINALIS [None]
  - PNEUMOMEDIASTINUM [None]
  - PNEUMOPERITONEUM [None]
  - RASH [None]
  - SUBCUTANEOUS EMPHYSEMA [None]
